FAERS Safety Report 9939401 (Version 1)
Quarter: 2014Q1

REPORT INFORMATION
  Report Type: Report from Study
  Country: US (occurrence: US)
  Receive Date: 20140303
  Receipt Date: 20140303
  Transmission Date: 20141002
  Serious: No
  Sender: FDA-Public Use
  Company Number: US-ABBVIE-13P-163-1033504-00

PATIENT
  Age: 23 Year
  Sex: Female

DRUGS (5)
  1. HUMIRA [Suspect]
     Indication: CROHN^S DISEASE
     Route: 058
     Dates: start: 2011
  2. AMITRIPTYLINE [Concomitant]
     Indication: GASTRIC DISORDER
  3. CITALOPRAM [Concomitant]
     Indication: ANXIETY
  4. AZATHIOPRINE [Concomitant]
     Indication: CROHN^S DISEASE
  5. OMEPRAZOLE [Concomitant]
     Indication: GASTROOESOPHAGEAL REFLUX DISEASE

REACTIONS (3)
  - Device malfunction [Unknown]
  - Device malfunction [Unknown]
  - Drug dose omission [Unknown]
